FAERS Safety Report 9265731 (Version 1)
Quarter: 2013Q2

REPORT INFORMATION
  Report Type: Report from Study
  Country: DE (occurrence: DE)
  Receive Date: 20130501
  Receipt Date: 20130501
  Transmission Date: 20140414
  Serious: Yes (Hospitalization, Other)
  Sender: FDA-Public Use
  Company Number: DE-VERTEX PHARMACEUTICALS INC-000000000000000770

PATIENT
  Age: 40 Year
  Sex: Female
  Weight: 65 kg

DRUGS (5)
  1. VX-950 (TELAPREVIR) [Suspect]
     Indication: HEPATITIS C
     Dosage: 2250 MG, QD
     Route: 048
     Dates: start: 20120329
  2. COPEGUS [Suspect]
     Indication: HEPATITIS C
     Dosage: 800 MG, QD
     Route: 048
  3. COPEGUS [Suspect]
     Dosage: 1000 MG, QD
     Route: 048
     Dates: start: 20120329
  4. PEGASYS [Suspect]
     Indication: HEPATITIS C
     Dosage: 180 ?G, QW
     Route: 058
     Dates: start: 20120329
  5. PARACETAMOL [Concomitant]
     Indication: PRODUCT USED FOR UNKNOWN INDICATION
     Dosage: 500 MG, PRN
     Dates: start: 20120329

REACTIONS (2)
  - Anaemia [Recovered/Resolved]
  - Pancytopenia [Recovered/Resolved]
